FAERS Safety Report 24750880 (Version 3)
Quarter: 2025Q3

REPORT INFORMATION
  Report Type: Report from Study
  Country: US (occurrence: US)
  Receive Date: 20241219
  Receipt Date: 20250816
  Transmission Date: 20251021
  Serious: No
  Sender: SANOFI AVENTIS
  Company Number: US-SA-2024SA372687

PATIENT
  Age: 4 Year
  Sex: Male

DRUGS (5)
  1. FABRAZYME [Suspect]
     Active Substance: AGALSIDASE BETA
     Indication: Fabry^s disease
     Dosage: 20 (UNITS NOT PROVIDED), QOW
     Route: 042
     Dates: start: 20230324
  2. FABRAZYME [Suspect]
     Active Substance: AGALSIDASE BETA
     Dosage: 10 MG, QOW
     Route: 042
     Dates: start: 20250606, end: 20250620
  3. FABRAZYME [Suspect]
     Active Substance: AGALSIDASE BETA
     Dosage: 15 MG, QOW
     Route: 042
     Dates: start: 20250703, end: 20250717
  4. FABRAZYME [Suspect]
     Active Substance: AGALSIDASE BETA
     Route: 042
     Dates: start: 20250731, end: 20250731
  5. FABRAZYME [Suspect]
     Active Substance: AGALSIDASE BETA
     Route: 042
     Dates: start: 20250808, end: 20250808

REACTIONS (2)
  - Infusion site reaction [Recovered/Resolved]
  - Off label use [Unknown]

NARRATIVE: CASE EVENT DATE: 20250731
